FAERS Safety Report 4819700-4 (Version None)
Quarter: 2005Q4

REPORT INFORMATION
  Report Type: 
  Country: None (occurrence: None)
  Receive Date: 20051102
  Receipt Date: 20051025
  Transmission Date: 20060501
  Serious: Yes (Other)
  Sender: FDA-Public Use
  Company Number: US-2005-020990

PATIENT
  Age: 31 Year
  Sex: Female
  Weight: 61.2 kg

DRUGS (2)
  1. MIRENA [Suspect]
     Indication: CONTRACEPTION
     Dosage: 20 UG/DAY, CONT, INTRA-UTERINE
     Route: 015
     Dates: start: 20050107, end: 20050629
  2. PNV [Concomitant]

REACTIONS (6)
  - ABDOMINAL ADHESIONS [None]
  - ENDOMETRIOSIS [None]
  - IUCD COMPLICATION [None]
  - OVARIAN CYST [None]
  - PELVIC PAIN [None]
  - UTERINE PERFORATION [None]
